FAERS Safety Report 5908890-8 (Version None)
Quarter: 2008Q4

REPORT INFORMATION
  Report Type: 
  Country: None (occurrence: None)
  Receive Date: 20081006
  Receipt Date: 20080929
  Transmission Date: 20090506
  Serious: Yes (Other)
  Sender: FDA-Public Use
  Company Number: US-AVENTIS-200815288EU

PATIENT
  Age: 69 Year
  Sex: Male

DRUGS (2)
  1. ENOXAPARIN SODIUM [Suspect]
     Indication: THROMBOSIS PROPHYLAXIS
     Route: 058
     Dates: start: 20070420, end: 20070423
  2. METOCLOPRAMIDE HYDROCHLORIDE [Concomitant]
     Dates: end: 20070418

REACTIONS (1)
  - MYOCARDIAL INFARCTION [None]
